FAERS Safety Report 6266576-7 (Version None)
Quarter: 2009Q3

REPORT INFORMATION
  Report Type: 
  Country: None (occurrence: None)
  Receive Date: 20090710
  Receipt Date: 20090701
  Transmission Date: 20100115
  Serious: Yes (Hospitalization)
  Sender: FDA-Public Use
  Company Number: DSA_33673_2009

PATIENT
  Sex: Male
  Weight: 66.2252 kg

DRUGS (7)
  1. XENAZINE [Suspect]
     Indication: HUNTINGTON'S CHOREA
     Dosage: (12.5 MG TID ORAL), (DF ORAL)
     Route: 048
     Dates: start: 20090421, end: 20090101
  2. XENAZINE [Suspect]
     Indication: HUNTINGTON'S CHOREA
     Dosage: (12.5 MG TID ORAL), (DF ORAL)
     Route: 048
     Dates: start: 20090407, end: 20090420
  3. ATENOLOL [Concomitant]
  4. ANTABUSE [Concomitant]
  5. AMLODIPINE [Concomitant]
  6. HYDROCODONE [Concomitant]
  7. M.V.I. [Concomitant]

REACTIONS (3)
  - ACUTE PSYCHOSIS [None]
  - DEPRESSION [None]
  - HEADACHE [None]
